FAERS Safety Report 19694806 (Version 3)
Quarter: 2021Q4

REPORT INFORMATION
  Report Type: Report from Study
  Country: US (occurrence: US)
  Receive Date: 20210812
  Receipt Date: 20211018
  Transmission Date: 20220303
  Serious: No
  Sender: FDA-Public Use
  Company Number: NVSC2021US176696

PATIENT
  Age: 74 Year
  Sex: Female
  Weight: 117.27 kg

DRUGS (1)
  1. OMNITROPE [Suspect]
     Active Substance: SOMATROPIN
     Indication: Hypopituitarism
     Dosage: 0.3 MG/KG, QD
     Route: 058

REACTIONS (3)
  - Injection site pain [Unknown]
  - Product storage error [Unknown]
  - Product leakage [Unknown]

NARRATIVE: CASE EVENT DATE: 20210724
